FAERS Safety Report 5810183-4 (Version None)
Quarter: 2008Q3

REPORT INFORMATION
  Report Type: 
  Country: None (occurrence: None)
  Receive Date: 20080715
  Receipt Date: 20070921
  Transmission Date: 20090109
  Serious: No
  Sender: FDA-Public Use
  Company Number: A0683555A

PATIENT
  Age: 44 Year
  Sex: Female

DRUGS (7)
  1. IMITREX [Suspect]
     Indication: MIGRAINE
     Dosage: 25MG AS REQUIRED
     Route: 048
     Dates: start: 20070301
  2. PREDNISONE TAB [Concomitant]
  3. RESTASIS [Concomitant]
  4. TRIAMCINOLONE LOTION [Concomitant]
  5. TRETINOIN [Concomitant]
  6. NORCO [Concomitant]
  7. VITAMIN B-12 [Concomitant]

REACTIONS (2)
  - DRUG INEFFECTIVE [None]
  - PHARMACEUTICAL PRODUCT COMPLAINT [None]
